FAERS Safety Report 16564358 (Version 1)
Quarter: 2019Q3

REPORT INFORMATION
  Report Type: Spontaneous
  Country: JP (occurrence: JP)
  Receive Date: 20190712
  Receipt Date: 20190712
  Transmission Date: 20191004
  Serious: No
  Sender: FDA-Public Use
  Company Number: JP-BEH-2019104140

PATIENT
  Sex: Female

DRUGS (4)
  1. HIZENTRA [Suspect]
     Active Substance: HUMAN IMMUNOGLOBULIN G
     Indication: CHRONIC INFLAMMATORY DEMYELINATING POLYRADICULONEUROPATHY
     Dosage: 20 GRAM (100 ML), QW
     Route: 058
     Dates: start: 20190606
  2. EMLA [LIDOCAINE;PRILOCAINE] [Concomitant]
     Indication: INJECTION SITE PAIN
     Dosage: 2 SHEETS
     Route: 003
     Dates: start: 20190607
  3. HIZENTRA [Suspect]
     Active Substance: HUMAN IMMUNOGLOBULIN G
     Indication: PROPHYLAXIS
  4. COPAXONE [Concomitant]
     Active Substance: GLATIRAMER ACETATE
     Indication: MULTIPLE SCLEROSIS RELAPSE PROPHYLAXIS
     Dosage: 20 MILLIGRAM
     Route: 058

REACTIONS (3)
  - Injection site pain [Recovered/Resolved]
  - Injection site pruritus [Recovering/Resolving]
  - Injection site warmth [Unknown]

NARRATIVE: CASE EVENT DATE: 201906
